FAERS Safety Report 8969408 (Version 1)
Quarter: 2012Q4

REPORT INFORMATION
  Report Type: 
  Country: US (occurrence: US)
  Receive Date: 20121218
  Receipt Date: 20121218
  Transmission Date: 20130627
  Serious: No
  Sender: FDA-Public Use
  Company Number: US-BRISTOL-MYERS SQUIBB COMPANY-16645426

PATIENT
  Age: 65 Year
  Sex: Male

DRUGS (2)
  1. ABILIFY [Suspect]
     Indication: SCHIZOPHRENIA
     Route: 048
     Dates: start: 20120511, end: 20120522
  2. VALIUM [Concomitant]

REACTIONS (6)
  - Pain [Unknown]
  - Abdominal discomfort [Unknown]
  - Agitation [Unknown]
  - Akathisia [Unknown]
  - Nausea [Unknown]
  - Middle insomnia [Unknown]
